FAERS Safety Report 6198454-6 (Version None)
Quarter: 2009Q2

REPORT INFORMATION
  Report Type: 
  Country: None (occurrence: None)
  Receive Date: 20090518
  Receipt Date: 20090510
  Transmission Date: 20091009
  Serious: Yes (Other)
  Sender: FDA-Public Use
  Company Number: CHPA2009US11346

PATIENT
  Age: 36 Year
  Sex: Female
  Weight: 63.9 kg

DRUGS (1)
  1. VAGISTAT-1            (TIOCONAZOLE) OINTMENT [Suspect]
     Dosage: 300 MG, ONCE/SINGLE, VAGINAL
     Route: 067
     Dates: start: 20090510, end: 20090510

REACTIONS (2)
  - FOREIGN BODY TRAUMA [None]
  - WRONG TECHNIQUE IN DRUG USAGE PROCESS [None]
